FAERS Safety Report 9510656 (Version 1)
Quarter: 2013Q3

REPORT INFORMATION
  Report Type: Spontaneous
  Country: US (occurrence: US)
  Receive Date: 20130909
  Receipt Date: 20130909
  Transmission Date: 20140515
  Serious: No
  Sender: FDA-Public Use
  Company Number: US-009507513-1309USA002795

PATIENT
  Age: 21 Year
  Sex: Female

DRUGS (3)
  1. ISENTRESS [Suspect]
     Indication: HIV INFECTION
     Dosage: 400 MG, BID
     Route: 048
     Dates: start: 2011
  2. TRUVADA [Concomitant]
  3. ORTHO TRI-CYCLEN [Concomitant]

REACTIONS (3)
  - Dysphagia [Unknown]
  - Product taste abnormal [Unknown]
  - Drug dose omission [Unknown]
